FAERS Safety Report 25123442 (Version 1)
Quarter: 2025Q1

REPORT INFORMATION
  Report Type: Spontaneous
  Country: US (occurrence: US)
  Receive Date: 20250326
  Receipt Date: 20250326
  Transmission Date: 20250408
  Serious: No
  Sender: GRIFOLS
  Company Number: US-IGSA-BIG0029217

PATIENT
  Sex: Female
  Weight: 35.374 kg

DRUGS (17)
  1. PROLASTIN-C LIQUID [Suspect]
     Active Substance: .ALPHA.1-PROTEINASE INHIBITOR HUMAN
     Indication: Alpha-1 antitrypsin deficiency
     Dosage: 2196 MILLIGRAM, Q.WK.
     Route: 042
  2. MORPHINE SULFATE [Concomitant]
     Active Substance: MORPHINE SULFATE
  3. EPINEPHRINE [Concomitant]
     Active Substance: EPINEPHRINE
  4. SODIUM CHLORIDE [Concomitant]
     Active Substance: SODIUM CHLORIDE
  5. ROXICODONE [Concomitant]
     Active Substance: OXYCODONE HYDROCHLORIDE
  6. ROFLUMILAST [Concomitant]
     Active Substance: ROFLUMILAST
  7. FAMOTIDINE [Concomitant]
     Active Substance: FAMOTIDINE
  8. OXYCODONE HYDROCHLORIDE [Concomitant]
     Active Substance: OXYCODONE HYDROCHLORIDE
  9. PEPCID [Concomitant]
     Active Substance: FAMOTIDINE
  10. DULOXETINE HYDROCHLORIDE [Concomitant]
     Active Substance: DULOXETINE HYDROCHLORIDE
  11. METOPROLOL TARTRATE [Concomitant]
     Active Substance: METOPROLOL TARTRATE
  12. GABAPENTIN [Concomitant]
     Active Substance: GABAPENTIN
  13. FORTEO [Concomitant]
     Active Substance: TERIPARATIDE
  14. IBUPROFEN [Concomitant]
     Active Substance: IBUPROFEN
  15. YUPELRI [Concomitant]
     Active Substance: REVEFENACIN
  16. BROVANA [Concomitant]
     Active Substance: ARFORMOTEROL TARTRATE
  17. ALBUTEROL SULFATE [Concomitant]
     Active Substance: ALBUTEROL SULFATE

REACTIONS (1)
  - Malaise [Unknown]
